FAERS Safety Report 19879135 (Version 1)
Quarter: 2021Q3

REPORT INFORMATION
  Report Type: Spontaneous
  Country: US (occurrence: US)
  Receive Date: 20210924
  Receipt Date: 20210924
  Transmission Date: 20211014
  Serious: Yes (Hospitalization)
  Sender: FDA-Public Use
  Company Number: US-MICRO LABS LIMITED-ML2021-02298

PATIENT
  Age: 36 Year
  Sex: Female

DRUGS (1)
  1. DIPHENHYDRAMINE HYDROCHLORIDE. [Suspect]
     Active Substance: DIPHENHYDRAMINE HYDROCHLORIDE

REACTIONS (11)
  - Mydriasis [Recovered/Resolved]
  - Dry skin [Recovered/Resolved]
  - Confusional state [Recovered/Resolved]
  - Mucosal dryness [Recovered/Resolved]
  - Nystagmus [Recovered/Resolved]
  - Vomiting [Recovered/Resolved]
  - Tachycardia [Recovered/Resolved]
  - Agitation [Recovered/Resolved]
  - Speech disorder [Recovered/Resolved]
  - Restlessness [Recovered/Resolved]
  - Toxicity to various agents [Recovered/Resolved]
